FAERS Safety Report 21418976 (Version 1)
Quarter: 2022Q4

REPORT INFORMATION
  Report Type: Spontaneous
  Country: RU (occurrence: RU)
  Receive Date: 20221006
  Receipt Date: 20221006
  Transmission Date: 20230112
  Serious: No
  Sender: FDA-Public Use
  Company Number: RU-009507513-2209RUS009294

PATIENT
  Age: 25 Year
  Sex: Male

DRUGS (2)
  1. LAGEVRIO [Suspect]
     Active Substance: MOLNUPIRAVIR
     Indication: Body temperature increased
     Dosage: UNK
     Dates: start: 20220920
  2. LAGEVRIO [Suspect]
     Active Substance: MOLNUPIRAVIR
     Indication: Asthenia

REACTIONS (1)
  - Product use in unapproved indication [Unknown]
